FAERS Safety Report 5927081-8 (Version None)
Quarter: 2008Q4

REPORT INFORMATION
  Report Type: 
  Country: None (occurrence: None)
  Receive Date: 20081022
  Receipt Date: 20081013
  Transmission Date: 20090506
  Serious: No
  Sender: FDA-Public Use
  Company Number: US-B.I. PHARMACEUTICALS,INC./RIDGEFIELD-2008-BP-15254BP

PATIENT
  Sex: Male

DRUGS (18)
  1. SPIRIVA [Suspect]
     Indication: CHRONIC OBSTRUCTIVE PULMONARY DISEASE
     Dosage: 18MCG
     Route: 055
     Dates: start: 20080917, end: 20080918
  2. LIPITOR [Concomitant]
     Dosage: 40MG
  3. FELODIPINE [Concomitant]
     Indication: HYPERTENSION
     Dosage: 10MG
  4. ASPIRIN [Concomitant]
     Indication: CORONARY ARTERY DISEASE
     Dosage: 81MG
     Dates: start: 20031122
  5. VALSARTAN [Concomitant]
     Indication: HYPERTENSION
     Dosage: 320MG
  6. HYDROCHLOROTHIAZIDE [Concomitant]
     Indication: HYPERTENSION
     Dosage: 37.5MG
     Dates: start: 20050201
  7. METOPROLOL TARTRATE [Concomitant]
     Indication: HYPERTENSION
     Dosage: 100MG
  8. PANTOPRAZOLE SODIUM [Concomitant]
     Dosage: 40MG
  9. PLAVIX [Concomitant]
     Indication: POOR PERIPHERAL CIRCULATION
     Dosage: 75MG
  10. NITROGLYCERIN [Concomitant]
  11. FOLIC ACID [Concomitant]
     Dosage: 1MG
  12. ATROVENT HFA [Concomitant]
     Dosage: 136MCG
  13. PROVENTIL-HFA [Concomitant]
  14. THERA TEARS [Concomitant]
  15. FLOMAX [Concomitant]
     Dosage: .4MG
     Dates: start: 20080521
  16. PERCOCET [Concomitant]
  17. NOVOLIN N [Concomitant]
  18. NOVALIN REGULAR INSULIN [Concomitant]

REACTIONS (1)
  - URINARY RETENTION [None]
